FAERS Safety Report 4843721-9 (Version None)
Quarter: 2005Q4

REPORT INFORMATION
  Report Type: 
  Country: None (occurrence: None)
  Receive Date: 20051202
  Receipt Date: 20051129
  Transmission Date: 20060501
  Serious: Yes (Other)
  Sender: FDA-Public Use
  Company Number: JP-AVENTIS-200513578JP

PATIENT

DRUGS (2)
  1. LASIX [Suspect]
     Route: 048
  2. LASIX [Suspect]
     Route: 042

REACTIONS (1)
  - PEMPHIGOID [None]
